FAERS Safety Report 20992617 (Version 1)
Quarter: 2022Q2

REPORT INFORMATION
  Report Type: Spontaneous
  Country: JP (occurrence: JP)
  Receive Date: 20220622
  Receipt Date: 20220622
  Transmission Date: 20220721
  Serious: Yes (Other)
  Sender: FDA-Public Use
  Company Number: JP-SLATE RUN PHARMACEUTICALS-22JP001158

PATIENT

DRUGS (6)
  1. VANCOMYCIN HYDROCHLORIDE [Suspect]
     Active Substance: VANCOMYCIN HYDROCHLORIDE
     Indication: Staphylococcal bacteraemia
     Dosage: 30 MILLIGRAM PER KILOGRAM, QD
  2. GENTAMICIN [Suspect]
     Active Substance: GENTAMICIN
     Indication: Staphylococcal bacteraemia
     Dosage: 3 MILLIGRAM PER KILOGRAM, QD
  3. RIFAMPIN [Suspect]
     Active Substance: RIFAMPIN
     Indication: Staphylococcal bacteraemia
     Dosage: 900 MILLIGRAM, QD
  4. CEFTRIAXONE [Concomitant]
     Active Substance: CEFTRIAXONE
     Indication: Product used for unknown indication
     Dosage: 2 GRAM, QD
  5. PENICILLIN G [Concomitant]
     Active Substance: PENICILLIN G
     Indication: Staphylococcal infection
     Dosage: 24000000 INTERNATIONAL UNIT, QD
  6. PENICILLIN G [Concomitant]
     Active Substance: PENICILLIN G
     Dosage: 24000000 INTERNATIONAL UNIT, QD

REACTIONS (2)
  - Treatment failure [Recovered/Resolved]
  - Cardiac valve vegetation [Recovered/Resolved]
